FAERS Safety Report 25622116 (Version 2)
Quarter: 2025Q3

REPORT INFORMATION
  Report Type: Spontaneous
  Country: CA (occurrence: CA)
  Receive Date: 20250730
  Receipt Date: 20250910
  Transmission Date: 20251020
  Serious: Yes (Other)
  Sender: CELLTRION
  Company Number: CA-CELLTRION INC.-2025CA022188

PATIENT

DRUGS (3)
  1. STEQEYMA [Suspect]
     Active Substance: USTEKINUMAB-STBA
     Indication: Psoriasis
     Route: 058
     Dates: start: 20250318
  2. STEQEYMA [Suspect]
     Active Substance: USTEKINUMAB-STBA
     Route: 058
     Dates: start: 20250610
  3. STEQEYMA [Suspect]
     Active Substance: USTEKINUMAB-STBA
     Route: 058

REACTIONS (2)
  - Pancreatitis [Unknown]
  - Head injury [Unknown]

NARRATIVE: CASE EVENT DATE: 20250610
